FAERS Safety Report 5280341-9 (Version None)
Quarter: 2007Q1

REPORT INFORMATION
  Report Type: 
  Country: None (occurrence: None)
  Receive Date: 20061215
  Receipt Date: 20050315
  Transmission Date: 20070707
  Serious: Yes (Death)
  Sender: FDA-Public Use
  Company Number: HQWYE169517MAR05

PATIENT
  Age: 16 Year
  Sex: Male

DRUGS (1)
  1. EFFEXOR XR [Suspect]

REACTIONS (6)
  - ANXIETY [None]
  - COMPLETED SUICIDE [None]
  - HEART RATE INCREASED [None]
  - HYPERHIDROSIS [None]
  - MIDDLE INSOMNIA [None]
  - THINKING ABNORMAL [None]
